FAERS Safety Report 5232319-9 (Version None)
Quarter: 2007Q1

REPORT INFORMATION
  Report Type: 
  Country: None (occurrence: None)
  Receive Date: 20070207
  Receipt Date: 20070201
  Transmission Date: 20070707
  Serious: Yes (Other)
  Sender: FDA-Public Use
  Company Number: DK-AVENTIS-200710493GDDC

PATIENT
  Age: 14 Year
  Sex: Male

DRUGS (2)
  1. MINIRIN [Suspect]
     Route: 048
  2. MINIRIN [Suspect]
     Route: 060
     Dates: start: 20061023

REACTIONS (2)
  - DRUG EFFECT DECREASED [None]
  - HYPERNATRAEMIA [None]
